FAERS Safety Report 4792466-2 (Version None)
Quarter: 2005Q4

REPORT INFORMATION
  Report Type: 
  Country: None (occurrence: None)
  Receive Date: 20051010
  Receipt Date: 20050831
  Transmission Date: 20060501
  Serious: Yes (Hospitalization)
  Sender: FDA-Public Use
  Company Number: FR-GLAXOSMITHKLINE-B0392847A

PATIENT
  Age: 50 Year
  Sex: Male
  Weight: 77 kg

DRUGS (10)
  1. ONDANSETRON [Suspect]
     Route: 048
     Dates: start: 20050630, end: 20050809
  2. TEMODAL [Suspect]
     Indication: OLIGODENDROGLIOMA
     Route: 048
     Dates: start: 20050630, end: 20050809
  3. DIHYDAN [Concomitant]
     Route: 048
     Dates: start: 20050520, end: 20050809
  4. NEURONTIN [Concomitant]
     Route: 048
     Dates: start: 20050519, end: 20050809
  5. URBANYL [Concomitant]
     Route: 065
     Dates: start: 20050520
  6. CLONAZEPAM [Concomitant]
     Route: 065
  7. DEPAKENE [Concomitant]
     Route: 065
     Dates: start: 20050201
  8. SOLU-MEDROL [Concomitant]
     Route: 065
     Dates: start: 20050201
  9. NEXIUM [Concomitant]
     Route: 065
     Dates: start: 20050201
  10. RADIOTHERAPY [Concomitant]
     Indication: OLIGODENDROGLIOMA

REACTIONS (7)
  - CONJUNCTIVITIS [None]
  - HEPATOCELLULAR DAMAGE [None]
  - MUCOUS MEMBRANE DISORDER [None]
  - PRURITUS [None]
  - RASH MACULO-PAPULAR [None]
  - SKIN DISORDER [None]
  - TOXIC EPIDERMAL NECROLYSIS [None]
